FAERS Safety Report 4315733-5 (Version None)
Quarter: 2004Q1

REPORT INFORMATION
  Report Type: 
  Country: None (occurrence: None)
  Receive Date: 20040309
  Receipt Date: 20040223
  Transmission Date: 20041129
  Serious: Yes (Hospitalization)
  Sender: FDA-Public Use
  Company Number: 204868

PATIENT
  Age: 71 Year
  Sex: Male
  Weight: 104.5 kg

DRUGS (6)
  1. RITUXAN [Suspect]
     Indication: B-CELL LYMPHOMA
     Dosage: 375  MG/M2, 1 WEEK, INTRAVENOUS
     Route: 042
     Dates: start: 20031124, end: 20031215
  2. INTERLUKIN-12 (INTERLUKIN-12) [Suspect]
     Indication: B-CELL LYMPHOMA
     Dosage: 300, 2/WEEK
     Dates: start: 20031125, end: 20040102
  3. LIPITOR [Concomitant]
  4. COUMADIN [Concomitant]
  5. ACIPHEX [Concomitant]
  6. BACTRIM DS [Concomitant]

REACTIONS (18)
  - ABDOMINAL TENDERNESS [None]
  - ASTHENIA [None]
  - BODY TEMPERATURE INCREASED [None]
  - BONE MARROW DEPRESSION [None]
  - CAECITIS [None]
  - CANDIDIASIS [None]
  - CEREBRAL INFARCTION [None]
  - CLOSTRIDIUM BACTERAEMIA [None]
  - COMA [None]
  - CONFUSIONAL STATE [None]
  - HEMIPARESIS [None]
  - HERPES ZOSTER [None]
  - MOUTH ULCERATION [None]
  - ORAL CANDIDIASIS [None]
  - PANCYTOPENIA [None]
  - PLEURAL EFFUSION [None]
  - SEPSIS [None]
  - SINUSITIS [None]
